FAERS Safety Report 8848713 (Version 1)
Quarter: 2012Q4

REPORT INFORMATION
  Report Type: Spontaneous
  Country: DK (occurrence: None)
  Receive Date: 20121015
  Receipt Date: 20121015
  Transmission Date: 20130627
  Serious: Yes (Hospitalization)
  Sender: FDA-Public Use
  Company Number: 2012MA012249

PATIENT
  Sex: Female

DRUGS (2)
  1. FEVERALL [Suspect]
     Indication: DRUG USE FOR UNKNOWN INDICATION
  2. NIMESULIDE [Suspect]
     Indication: DRUG USE FOR UNKNOWN INDICATION

REACTIONS (4)
  - Hypotension [None]
  - Chest pain [None]
  - Abdominal pain upper [None]
  - Pyrexia [None]
